FAERS Safety Report 12744776 (Version 1)
Quarter: 2016Q3

REPORT INFORMATION
  Report Type: Report from Study
  Country: DE (occurrence: DE)
  Receive Date: 20160915
  Receipt Date: 20160915
  Transmission Date: 20161109
  Serious: Yes (Other)
  Sender: FDA-Public Use
  Company Number: DE-BIOGEN-2016BI00291896

PATIENT
  Age: 44 Year
  Sex: Female

DRUGS (1)
  1. PLEGRIDY [Suspect]
     Active Substance: PEGINTERFERON BETA-1A
     Indication: PRODUCT USED FOR UNKNOWN INDICATION
     Route: 058
     Dates: start: 201605

REACTIONS (2)
  - Mammoplasty [Recovered/Resolved]
  - Device defective [Not Recovered/Not Resolved]

NARRATIVE: CASE EVENT DATE: 20160909
